FAERS Safety Report 21983644 (Version 1)
Quarter: 2023Q1

REPORT INFORMATION
  Report Type: Spontaneous
  Country: US (occurrence: US)
  Receive Date: 20230213
  Receipt Date: 20230213
  Transmission Date: 20230418
  Serious: No
  Sender: FDA-Public Use
  Company Number: US-BRISTOL-MYERS SQUIBB COMPANY-2023-020259

PATIENT
  Age: 79 Year
  Sex: Male

DRUGS (1)
  1. POMALYST [Suspect]
     Active Substance: POMALIDOMIDE
     Indication: Body tinea
     Dosage: 1 CAPSULE BY MOUTH DAILY FOR 21 DAYS THEN OFF FOR 7 DAYS
     Route: 048

REACTIONS (1)
  - Off label use [Unknown]
